FAERS Safety Report 4765286-2 (Version None)
Quarter: 2005Q3

REPORT INFORMATION
  Report Type: 
  Country: None (occurrence: None)
  Receive Date: 20050909
  Receipt Date: 20050901
  Transmission Date: 20060218
  Serious: Yes (Hospitalization, Other)
  Sender: FDA-Public Use
  Company Number: US-MERCK-0509USA00758

PATIENT
  Age: 53 Year
  Sex: Male
  Weight: 92 kg

DRUGS (10)
  1. VIOXX [Suspect]
     Indication: ARTHRALGIA
     Route: 048
     Dates: start: 19991104, end: 20040901
  2. VIOXX [Suspect]
     Route: 048
     Dates: start: 19991104, end: 20040901
  3. VIOXX [Suspect]
     Indication: SHOULDER PAIN
     Route: 048
     Dates: start: 19991104, end: 20040901
  4. VIOXX [Suspect]
     Route: 048
     Dates: start: 19991104, end: 20040901
  5. TOPROL-XL [Concomitant]
     Indication: CARDIAC DISORDER
     Route: 065
     Dates: start: 19990101
  6. LASIX [Concomitant]
     Indication: OEDEMA
     Route: 065
     Dates: start: 19990101
  7. LASIX [Concomitant]
     Indication: CARDIAC DISORDER
     Route: 065
     Dates: start: 19990101
  8. ASPIRIN [Concomitant]
     Indication: CEREBROVASCULAR ACCIDENT PROPHYLAXIS
     Route: 065
     Dates: start: 19990101
  9. ASPIRIN [Concomitant]
     Indication: PROPHYLAXIS
     Route: 065
     Dates: start: 19990101
  10. PROZAC [Concomitant]
     Indication: DEPRESSION
     Route: 065
     Dates: start: 19990101

REACTIONS (10)
  - CARPAL TUNNEL SYNDROME [None]
  - CHRONIC OBSTRUCTIVE PULMONARY DISEASE [None]
  - DEPRESSION [None]
  - DIABETES MELLITUS [None]
  - FATIGUE [None]
  - HYPERTENSION [None]
  - MULTIPLE SCLEROSIS [None]
  - MYOCARDIAL INFARCTION [None]
  - RESTLESS LEGS SYNDROME [None]
  - TRANSIENT ISCHAEMIC ATTACK [None]
